FAERS Safety Report 8387233-7 (Version None)
Quarter: 2012Q2

REPORT INFORMATION
  Report Type: 
  Country: None (occurrence: None)
  Receive Date: 20120525
  Receipt Date: 20120518
  Transmission Date: 20120825
  Serious: Yes (Other)
  Sender: FDA-Public Use
  Company Number: US-UCBSA-057743

PATIENT
  Sex: Female

DRUGS (1)
  1. CIMZIA [Suspect]
     Indication: CROHN'S DISEASE
     Dates: start: 20120421, end: 20120421

REACTIONS (5)
  - DRUG ERUPTION [None]
  - ANXIETY [None]
  - DYSPNOEA [None]
  - PALPITATIONS [None]
  - INJECTION SITE MASS [None]
